FAERS Safety Report 5495712-5 (Version None)
Quarter: 2007Q4

REPORT INFORMATION
  Report Type: 
  Country: None (occurrence: None)
  Receive Date: 20071025
  Receipt Date: 20071017
  Transmission Date: 20080405
  Serious: Yes (Life-Threatening, Hospitalization, Other)
  Sender: FDA-Public Use
  Company Number: ID-NOVOPROD-268277

PATIENT
  Age: 65 Year
  Sex: Male
  Weight: 64.2 kg

DRUGS (5)
  1. NOVOLOG MIX 70/30 [Suspect]
     Indication: INSULIN-REQUIRING TYPE II DIABETES MELLITUS
     Dosage: 22 IU, QD
     Route: 058
     Dates: start: 20070730, end: 20070928
  2. NOVOLOG MIX 70/30 [Suspect]
     Dosage: 18 IU, QD
     Route: 058
     Dates: start: 20070928
  3. ALLOPURINOL [Concomitant]
     Indication: HYPERURICAEMIA
     Route: 048
     Dates: start: 20070101
  4. SIMVASTATIN [Concomitant]
     Indication: HYPERLIPIDAEMIA
     Route: 048
     Dates: start: 20070101
  5. ASCARDIA [Concomitant]
     Route: 048
     Dates: start: 20070101

REACTIONS (2)
  - BLOOD PRESSURE INCREASED [None]
  - ISCHAEMIC STROKE [None]
